FAERS Safety Report 25469552 (Version 1)
Quarter: 2025Q2

REPORT INFORMATION
  Report Type: Spontaneous
  Country: CN (occurrence: CN)
  Receive Date: 20250623
  Receipt Date: 20250623
  Transmission Date: 20250716
  Serious: Yes (Hospitalization)
  Sender: SANOFI AVENTIS
  Company Number: CN-SA-2025SA172848

PATIENT
  Age: 71 Year
  Sex: Male
  Weight: 72 kg

DRUGS (2)
  1. CLOPIDOGREL BISULFATE [Suspect]
     Active Substance: CLOPIDOGREL BISULFATE
     Indication: Platelet aggregation abnormal
     Dosage: 75 MG, QD
     Route: 048
     Dates: start: 20250512, end: 20250513
  2. ASPIRIN [Suspect]
     Active Substance: ASPIRIN
     Indication: Platelet aggregation abnormal
     Dosage: 0.1 G, QD
     Route: 048
     Dates: start: 20250512, end: 20250513

REACTIONS (1)
  - Prothrombin time prolonged [Recovering/Resolving]

NARRATIVE: CASE EVENT DATE: 20250513
